FAERS Safety Report 16026649 (Version 2)
Quarter: 2019Q1

REPORT INFORMATION
  Report Type: Spontaneous
  Country: US (occurrence: US)
  Receive Date: 20190302
  Receipt Date: 20190307
  Transmission Date: 20190418
  Serious: No
  Sender: FDA-Public Use
  Company Number: US-ALLERGAN-1907968US

PATIENT
  Sex: Female

DRUGS (2)
  1. REFRESH OPTIVE SENSITIVE [Suspect]
     Active Substance: CARBOXYMETHYLCELLULOSE SODIUM\GLYCERIN
     Indication: EYE LUBRICATION THERAPY
     Dosage: UNK
     Route: 047
     Dates: start: 201902
  2. LOSARTAN. [Concomitant]
     Active Substance: LOSARTAN
     Indication: HYPERTENSION
     Dosage: UNK
     Route: 048

REACTIONS (6)
  - Accidental exposure to product [Unknown]
  - Product dispensing error [Unknown]
  - Physical product label issue [Unknown]
  - Expired product administered [Unknown]
  - Eye pain [Not Recovered/Not Resolved]
  - Product dose omission [Unknown]

NARRATIVE: CASE EVENT DATE: 2019
